FAERS Safety Report 5232458-2 (Version None)
Quarter: 2007Q1

REPORT INFORMATION
  Report Type: 
  Country: None (occurrence: None)
  Receive Date: 20070207
  Receipt Date: 20070201
  Transmission Date: 20070707
  Serious: Yes (Hospitalization)
  Sender: FDA-Public Use
  Company Number: US-BRISTOL-MYERS SQUIBB COMPANY-13360037

PATIENT
  Age: 65 Year
  Sex: Female

DRUGS (4)
  1. CETUXIMAB [Suspect]
     Indication: NON-SMALL CELL LUNG CANCER
     Dosage: INITIATED ON 09-MAR-2006. DOSE DELAYED/OMITTED.
     Route: 042
     Dates: start: 20060405, end: 20060405
  2. CARBOPLATIN [Suspect]
     Indication: NON-SMALL CELL LUNG CANCER
     Dosage: INITIATED ON 09-MAR-2006.
     Route: 042
     Dates: start: 20060329, end: 20060329
  3. TAXOL [Suspect]
     Indication: NON-SMALL CELL LUNG CANCER
     Dosage: INITIATED ON 09-MAR-2006.
     Route: 042
     Dates: start: 20060329, end: 20060329
  4. DARVOCET [Concomitant]
     Dates: start: 20060306

REACTIONS (2)
  - LOBAR PNEUMONIA [None]
  - MYOCARDIAL INFARCTION [None]
